FAERS Safety Report 5339920-2 (Version None)
Quarter: 2007Q2

REPORT INFORMATION
  Report Type: 
  Country: None (occurrence: None)
  Receive Date: 20070531
  Receipt Date: 20070412
  Transmission Date: 20071010
  Serious: Yes (Other)
  Sender: FDA-Public Use
  Company Number: BR-BAYER-200712303GDS

PATIENT
  Age: 13 Year
  Sex: Female

DRUGS (1)
  1. ASPIRIN [Suspect]
     Indication: DRUG USE FOR UNKNOWN INDICATION
     Route: 048
     Dates: start: 20070226, end: 20070226

REACTIONS (4)
  - COUGH [None]
  - DYSPNOEA [None]
  - LARYNGEAL OEDEMA [None]
  - WHEEZING [None]
